FAERS Safety Report 10110625 (Version 2)
Quarter: 2014Q4

REPORT INFORMATION
  Report Type: Other
  Country: US (occurrence: US)
  Receive Date: 20140425
  Receipt Date: 20141204
  Transmission Date: 20150528
  Serious: Yes (Hospitalization, Other)
  Sender: FDA-Public Use
  Company Number: US-GSKPPD-2014GSK007910

PATIENT
  Age: 60 Year
  Sex: Male

DRUGS (4)
  1. AVANDIA [Suspect]
     Active Substance: ROSIGLITAZONE MALEATE
     Indication: DIABETES MELLITUS
     Dosage: AVANDIA WAS NOT LISTED AMONG THE PATIENTS RECORDS REVIEWED.
     Route: 048
  2. ENTERIC COATED ASPIRIN [Concomitant]
     Active Substance: ASPIRIN
  3. COZAAR [Concomitant]
     Active Substance: LOSARTAN POTASSIUM
     Route: 048
  4. ZOCOR [Concomitant]
     Active Substance: SIMVASTATIN

REACTIONS (2)
  - Carotid artery stenosis [Recovered/Resolved]
  - Cerebrovascular accident [None]

NARRATIVE: CASE EVENT DATE: 20070427
